FAERS Safety Report 9666153 (Version 5)
Quarter: 2015Q4

REPORT INFORMATION
  Report Type: Spontaneous
  Country: JP (occurrence: JP)
  Receive Date: 20131104
  Receipt Date: 20151005
  Transmission Date: 20160305
  Serious: Yes (Life-Threatening, Hospitalization, Other)
  Sender: FDA-Public Use
  Company Number: JP-009507513-1309JPN007117

PATIENT
  Age: 79 Year
  Sex: Male
  Weight: 69 kg

DRUGS (21)
  1. FLIVAS [Concomitant]
     Active Substance: NAFTOPIDIL
     Dosage: FORMULATION:POR,DAILY DOSE UNKNOWN
     Route: 048
  2. ESLAX INTRAVENOUS 25MG/2.5ML [Suspect]
     Active Substance: ROCURONIUM BROMIDE
     Indication: NEUROMUSCULAR BLOCKING THERAPY
     Dosage: DAILY DOSAGE UNKNOWN
     Route: 042
     Dates: start: 20130912, end: 20130912
  3. SEVOFLURANE. [Concomitant]
     Active Substance: SEVOFLURANE
     Dosage: DAILY DOSE UNKNOWN
     Route: 065
  4. ULTIVA [Concomitant]
     Active Substance: REMIFENTANIL HYDROCHLORIDE
     Dosage: DAILY DOSE UNKNOWN/0.2 MCG/KIG/MIN
     Route: 051
  5. ATROPINE. [Concomitant]
     Active Substance: ATROPINE
     Dosage: DAILY DOSE UNKNOWN
     Route: 065
  6. NEOSYNESIN [Concomitant]
     Active Substance: PHENYLEPHRINE HYDROCHLORIDE
     Dosage: DAILY DOSE UNKNOWN
     Route: 065
  7. DOPAMINE HYDROCHLORIDE. [Concomitant]
     Active Substance: DOPAMINE HYDROCHLORIDE
     Dosage: DAILY DOSE UNKNOWN
     Route: 065
  8. FEBURIC [Concomitant]
     Active Substance: FEBUXOSTAT
     Dosage: FORMULATION:POR,DAILY DOSE UNKNOWN,
     Route: 048
  9. PHENYLEPHRINE HYDROCHLORIDE. [Concomitant]
     Active Substance: PHENYLEPHRINE HYDROCHLORIDE
     Dosage: DAILY DOSE UNKNOWN
     Route: 065
  10. SOLU-MEDROL [Concomitant]
     Active Substance: METHYLPREDNISOLONE SODIUM SUCCINATE
     Dosage: DAILY DOSAGE UNKNOWN
     Route: 042
     Dates: start: 20130912
  11. FERROMIA [Concomitant]
     Active Substance: FERROUS CITRATE
     Dosage: FORMULATION:POR,DAILY DOSE UNKNOWN,
     Route: 048
  12. BRIDION [Suspect]
     Active Substance: SUGAMMADEX
     Indication: NEUROMUSCULAR BLOCKADE REVERSAL
     Dosage: DIVIDED DOSE FREQUENCY UNKNOWN
     Route: 042
     Dates: start: 20130912, end: 20130912
  13. HANP [Concomitant]
     Active Substance: CARPERITIDE
     Dosage: DAILY DOSE UNKNOWN
     Route: 051
  14. MILLISROL [Concomitant]
     Dosage: DAILY DOSE UNKNOWN
     Route: 065
  15. OPALMON [Concomitant]
     Active Substance: LIMAPROST
     Dosage: FORMULATION:POR,DAILY DOSE UNKNOWN
     Route: 048
  16. FENTANYL CITRATE. [Concomitant]
     Active Substance: FENTANYL CITRATE
     Dosage: DAILY DOSE UNKNOWN
     Route: 065
  17. PROPOFOL. [Concomitant]
     Active Substance: PROPOFOL
     Dosage: DAILY DOSE UNKNOWN
     Route: 051
  18. SULBACILLIN [Concomitant]
     Active Substance: AMPICILLIN SODIUM\SULBACTAM SODIUM
     Dosage: DAILY DOSE UNKNOWN
     Route: 051
  19. BAYASPIRIN [Concomitant]
     Active Substance: ASPIRIN
     Dosage: FORMULATION:POR,DAILY DOSE UNKNOWN
     Route: 048
  20. EPINEPHRINE. [Concomitant]
     Active Substance: EPINEPHRINE
     Dosage: DAILY DOSAGE UNKNOWN
     Route: 065
  21. MICOMBI [Concomitant]
     Active Substance: HYDROCHLOROTHIAZIDE\TELMISARTAN
     Dosage: FORMULATION POR/DAILY DOSE UNKNOWN
     Route: 048

REACTIONS (6)
  - Sepsis [Unknown]
  - Renal failure [Unknown]
  - Cardiac arrest [Recovering/Resolving]
  - Incorrect product storage [Unknown]
  - Ventricular fibrillation [Unknown]
  - Anaphylactic shock [Recovering/Resolving]

NARRATIVE: CASE EVENT DATE: 20130912
